FAERS Safety Report 4645682-4 (Version None)
Quarter: 2005Q2

REPORT INFORMATION
  Report Type: 
  Country: None (occurrence: None)
  Receive Date: 20050331
  Receipt Date: 20050217
  Transmission Date: 20051028
  Serious: No
  Sender: FDA-Public Use
  Company Number: 05P-163-0291238-00

PATIENT
  Age: 74 Year
  Sex: Female
  Weight: 108 kg

DRUGS (17)
  1. HUMIRA [Suspect]
     Indication: RHEUMATOID ARTHRITIS
     Dosage: 40 MG, 1 IN 2 WK, SUBCUTANEOUS
     Route: 058
     Dates: start: 20050117
  2. HYDROCHLOROTHIAZIDE [Concomitant]
  3. DEXTROPROPOXYPHENE NAPSILATE [Concomitant]
  4. KRISTOLOSE [Concomitant]
  5. RESTASIS [Concomitant]
  6. CALCIUM GLUCONATE [Concomitant]
  7. CRANSMOX [Concomitant]
  8. ACETAMINOPHEN [Concomitant]
  9. MULTI-VITAMINS [Concomitant]
  10. GLUCOSAMINE [Concomitant]
  11. HYDROXYCHLOROQUINE PHOSPHATE [Concomitant]
  12. PREDNISONE [Concomitant]
  13. METHOTREXATE SODIUM [Concomitant]
  14. FOLIC ACID [Concomitant]
  15. LANSOPRAZOLE [Concomitant]
  16. CLONIDINE [Concomitant]
  17. QUINAPRIL HCL [Concomitant]

REACTIONS (2)
  - JOINT STIFFNESS [None]
  - UNEVALUABLE EVENT [None]
